FAERS Safety Report 8615087-X (Version None)
Quarter: 2012Q3

REPORT INFORMATION
  Report Type: 
  Country: None (occurrence: None)
  Receive Date: 20120823
  Receipt Date: 20120817
  Transmission Date: 20120928
  Serious: Yes (Other)
  Sender: FDA-Public Use
  Company Number: PHEH2012US002940

PATIENT
  Age: 43 Year
  Sex: Female

DRUGS (3)
  1. MULTI-VITAMIN [Concomitant]
  2. ENZYMES [Concomitant]
  3. GILENYA [Suspect]
     Indication: MULTIPLE SCLEROSIS
     Dosage: 0.5 MG, QD
     Dates: start: 20110301, end: 20120131

REACTIONS (8)
  - CHEST PAIN [None]
  - DIZZINESS [None]
  - DYSPNOEA [None]
  - LYMPHOCYTE COUNT DECREASED [None]
  - ANGINA PECTORIS [None]
  - ANGINA UNSTABLE [None]
  - WHITE BLOOD CELL COUNT DECREASED [None]
  - PALPITATIONS [None]
